FAERS Safety Report 24000647 (Version 1)
Quarter: 2024Q2

REPORT INFORMATION
  Report Type: Other
  Country: US (occurrence: US)
  Receive Date: 20240621
  Receipt Date: 20240621
  Transmission Date: 20240716
  Serious: Yes (Other)
  Sender: FDA-Public Use
  Company Number: US-SCIEGENP-2024SCSPO00315

PATIENT

DRUGS (1)
  1. BUPROPION HYDROCHLORIDE [Suspect]
     Active Substance: BUPROPION HYDROCHLORIDE
     Indication: Product used for unknown indication
     Route: 065

REACTIONS (11)
  - Suicidal ideation [Unknown]
  - Job dissatisfaction [Unknown]
  - Feeling of despair [Unknown]
  - Apathy [Unknown]
  - Disturbance in attention [Unknown]
  - Impaired work ability [Unknown]
  - Feeling abnormal [Unknown]
  - Mood altered [Unknown]
  - Restlessness [Unknown]
  - Anxiety [Unknown]
  - Product odour abnormal [Unknown]
